FAERS Safety Report 17098901 (Version 3)
Quarter: 2020Q1

REPORT INFORMATION
  Report Type: Spontaneous
  Country: US (occurrence: US)
  Receive Date: 20191202
  Receipt Date: 20200121
  Transmission Date: 20200409
  Serious: Yes (Hospitalization, Other)
  Sender: FDA-Public Use
  Company Number: US-PFIZER INC-2019511743

PATIENT
  Age: 16 Year
  Sex: Male
  Weight: 87.9 kg

DRUGS (14)
  1. ALENDRONATE [Concomitant]
     Active Substance: ALENDRONATE SODIUM
     Indication: BONE DENSITY ABNORMAL
     Dosage: 70 MG, WEEKLY (ALSO REPORTED STARTED 12 YEARS)
     Route: 048
     Dates: start: 2009
  2. FEXOFENADINE [Concomitant]
     Active Substance: FEXOFENADINE HYDROCHLORIDE
     Indication: PRURITUS
     Dosage: 100 MG, AS NEEDED (3X WEEKLY)
     Route: 048
     Dates: start: 2016
  3. DILANTIN [Suspect]
     Active Substance: PHENYTOIN
     Indication: EPILEPSY
     Dosage: 200 MG, 2X/DAY
     Route: 048
  4. CETIRIZINE HYDROCHLORIDE. [Concomitant]
     Active Substance: CETIRIZINE HYDROCHLORIDE
     Dosage: 10 MG, UNK
  5. DILANTIN [Suspect]
     Active Substance: PHENYTOIN
     Dosage: 200 MG, 2X/DAY (100MG, 2 IN THE MORNING AND 2 AT BEDTIME)
     Dates: start: 1970
  6. LAMOTRIGINE. [Concomitant]
     Active Substance: LAMOTRIGINE
     Dosage: 100 MG, DAILY
  7. LISINOPRIL. [Concomitant]
     Active Substance: LISINOPRIL
     Indication: HYPERTENSION
     Dosage: 10 MG, 1X/DAY
     Route: 048
     Dates: start: 2009
  8. LAMOTRIGINE. [Concomitant]
     Active Substance: LAMOTRIGINE
     Indication: EPILEPSY
     Dosage: 50 MG, 2X/DAY
     Route: 048
     Dates: start: 20191031
  9. LEVOTHYROXINE. [Concomitant]
     Active Substance: LEVOTHYROXINE
     Indication: THYROID DISORDER
     Dosage: 200 MG, 1X/DAY
     Route: 048
     Dates: start: 2009
  10. OMEPRAZOLE. [Concomitant]
     Active Substance: OMEPRAZOLE
     Dosage: UNK
  11. FOLIC ACID. [Concomitant]
     Active Substance: FOLIC ACID
     Dosage: UNK
  12. CIMETIDINE [Concomitant]
     Active Substance: CIMETIDINE
     Dosage: UNK
  13. DILANTIN [Suspect]
     Active Substance: PHENYTOIN
     Indication: SEIZURE
     Dosage: 200 MG, 2X/DAY
     Route: 048
     Dates: start: 1969
  14. DILANTIN [Suspect]
     Active Substance: PHENYTOIN
     Dosage: 300 MG, DAILY
     Dates: start: 1969

REACTIONS (3)
  - Product dose omission [Unknown]
  - Alcoholic seizure [Recovered/Resolved]
  - Anticonvulsant drug level below therapeutic [Not Recovered/Not Resolved]

NARRATIVE: CASE EVENT DATE: 1969
